FAERS Safety Report 18144172 (Version 1)
Quarter: 2020Q3

REPORT INFORMATION
  Report Type: Spontaneous
  Country: US (occurrence: US)
  Receive Date: 20200812
  Receipt Date: 20200812
  Transmission Date: 20201103
  Serious: Yes (Hospitalization)
  Sender: FDA-Public Use
  Company Number: None

PATIENT
  Sex: Female

DRUGS (18)
  1. FUROSEMIDE. [Concomitant]
     Active Substance: FUROSEMIDE
  2. HYDROCO/APAP [Concomitant]
     Active Substance: ACETAMINOPHEN\HYDROCODONE
  3. LOSARTAN POT [Concomitant]
     Active Substance: LOSARTAN POTASSIUM
  4. MORPHINE SUL [Concomitant]
     Active Substance: MORPHINE SULFATE
  5. ONDANSETRON [Concomitant]
     Active Substance: ONDANSETRON
  6. SMZ/TMP DS [Concomitant]
     Active Substance: SULFAMETHOXAZOLE\TRIMETHOPRIM
  7. HYDRALAZINE [Concomitant]
     Active Substance: HYDRALAZINE HYDROCHLORIDE
  8. NARCAN [Concomitant]
     Active Substance: NALOXONE HYDROCHLORIDE
  9. LEVOTHYROXIN [Concomitant]
     Active Substance: LEVOTHYROXINE
  10. EVEROLIMUS 5MG (7 TAB/CARD) [Suspect]
     Active Substance: EVEROLIMUS
     Indication: PRODUCT USED FOR UNKNOWN INDICATION
     Dosage: ?          OTHER DOSE:1 TAB;?
     Route: 048
     Dates: start: 20200613
  11. AMLODIPINE [Concomitant]
     Active Substance: AMLODIPINE BESYLATE
  12. SUMATRIPTAN. [Concomitant]
     Active Substance: SUMATRIPTAN
  13. LORAZEPAM. [Concomitant]
     Active Substance: LORAZEPAM
  14. SENNA [Concomitant]
     Active Substance: SENNA LEAF\SENNOSIDES\SENNOSIDES A AND B
  15. CARVEDILOL. [Concomitant]
     Active Substance: CARVEDILOL
  16. FLUOCIN ACET OIL [Concomitant]
  17. OXYCODONE [Concomitant]
     Active Substance: OXYCODONE
  18. ELIQUIS [Concomitant]
     Active Substance: APIXABAN

REACTIONS (2)
  - Product dose omission issue [None]
  - Nausea [None]
